FAERS Safety Report 20028575 (Version 1)
Quarter: 2021Q4

REPORT INFORMATION
  Report Type: Spontaneous
  Country: US (occurrence: US)
  Receive Date: 20211103
  Receipt Date: 20211103
  Transmission Date: 20220303
  Serious: Yes (Other)
  Sender: FDA-Public Use
  Company Number: US-drreddys-SPO/USA/21/0143183

PATIENT
  Age: 21 Year
  Sex: Female

DRUGS (1)
  1. ACCUTANE [Suspect]
     Active Substance: ISOTRETINOIN
     Indication: Product used for unknown indication
     Dosage: RMA ISSUE DATE: 21/JULY/2021 6:23:22 PM, 20/AUGUST/2021 6:11:06 PM, 24/SEPTEMBER/2021 4:58:22 PM .
     Dates: start: 20210611, end: 20211027

REACTIONS (2)
  - Vaginal haemorrhage [Not Recovered/Not Resolved]
  - Exposure during pregnancy [Unknown]

NARRATIVE: CASE EVENT DATE: 20211001
